FAERS Safety Report 19177533 (Version 1)
Quarter: 2021Q2

REPORT INFORMATION
  Report Type: Spontaneous
  Country: CA (occurrence: CA)
  Receive Date: 20210425
  Receipt Date: 20210425
  Transmission Date: 20210717
  Serious: Yes (Other)
  Sender: FDA-Public Use
  Company Number: CA-JNJFOC-20210444717

PATIENT
  Age: 62 Year
  Sex: Female

DRUGS (10)
  1. FROVATRIPTAN. [Concomitant]
     Active Substance: FROVATRIPTAN
  2. CODEINE [Concomitant]
     Active Substance: CODEINE
  3. NESIRITIDE [Concomitant]
     Active Substance: NESIRITIDE
  4. VENTOLINE [SALBUTAMOL] [Concomitant]
     Active Substance: ALBUTEROL SULFATE
  5. MIRTAZAPINE. [Concomitant]
     Active Substance: MIRTAZAPINE
  6. BUDESONIDE;FORMOTEROL FUMARATE [Concomitant]
     Active Substance: BUDESONIDE\FORMOTEROL FUMARATE
  7. INFLIXIMAB, RECOMBINANT [Suspect]
     Active Substance: INFLIXIMAB
     Indication: CROHN^S DISEASE
     Route: 042
  8. WELLBUTRIN [Concomitant]
     Active Substance: BUPROPION HYDROCHLORIDE
  9. ZOPICLONE [Concomitant]
     Active Substance: ZOPICLONE
  10. ESOMEPRAZOLE SODIUM. [Concomitant]
     Active Substance: ESOMEPRAZOLE SODIUM

REACTIONS (1)
  - Weight increased [Unknown]
